FAERS Safety Report 6328793-7 (Version None)
Quarter: 2009Q3

REPORT INFORMATION
  Report Type: 
  Country: None (occurrence: None)
  Receive Date: 20090826
  Receipt Date: 20090811
  Transmission Date: 20100115
  Serious: Yes (Hospitalization)
  Sender: FDA-Public Use
  Company Number: PL-MEDIMMUNE-MEDI-0008569

PATIENT
  Sex: Male
  Weight: 3.6 kg

DRUGS (2)
  1. SYNAGIS [Suspect]
     Indication: BRONCHOPULMONARY DYSPLASIA
     Route: 030
     Dates: start: 20090207, end: 20090304
  2. SYNAGIS [Suspect]
     Route: 030
     Dates: start: 20090207

REACTIONS (8)
  - ANAEMIA [None]
  - BRONCHOPULMONARY DYSPLASIA [None]
  - CEREBRAL HAEMORRHAGE NEONATAL [None]
  - HYDROCEPHALUS [None]
  - HYPOTHYROIDISM [None]
  - PNEUMONIA [None]
  - PREMATURE BABY [None]
  - RETINOPATHY HYPERTENSIVE [None]
